FAERS Safety Report 6222085-2 (Version None)
Quarter: 2009Q2

REPORT INFORMATION
  Report Type: 
  Country: None (occurrence: None)
  Receive Date: 20090609
  Receipt Date: 20090603
  Transmission Date: 20091009
  Serious: Yes (Hospitalization)
  Sender: FDA-Public Use
  Company Number: 286926

PATIENT
  Age: 33 Year
  Sex: Female
  Weight: 63.5 kg

DRUGS (3)
  1. BUPIVACAINE HCL [Suspect]
     Indication: LABOUR PAIN
     Dosage: EPIDURAL
     Route: 008
     Dates: start: 20090521, end: 20090521
  2. FENTANYL CITRATE [Suspect]
     Indication: LABOUR PAIN
     Dosage: EPIDURAL
     Route: 008
     Dates: start: 20090521, end: 20090521
  3. (ROPIVACAINE) [Suspect]
     Indication: LABOUR PAIN
     Dosage: EPIDURAL
     Route: 008
     Dates: start: 20090521, end: 20090521

REACTIONS (4)
  - DRUG EXPOSURE DURING PREGNANCY [None]
  - MENINGITIS BACTERIAL [None]
  - PRODUCT CONTAMINATION MICROBIAL [None]
  - WRONG TECHNIQUE IN DRUG USAGE PROCESS [None]
